FAERS Safety Report 8002008-6 (Version None)
Quarter: 2011Q4

REPORT INFORMATION
  Report Type: 
  Country: None (occurrence: None)
  Receive Date: 20111222
  Receipt Date: 20110919
  Transmission Date: 20120403
  Serious: No
  Sender: FDA-Public Use
  Company Number: US-BAYER-2011-089588

PATIENT
  Sex: Male

DRUGS (4)
  1. A SERIES OF VITAMINS [Concomitant]
  2. ASPIRIN [Concomitant]
  3. AVELOX [Suspect]
     Indication: INFECTION
     Dosage: 400 MG, QD
     Route: 048
  4. TWO SUGAR PILLS [Concomitant]
     Indication: DIABETES MELLITUS

REACTIONS (1)
  - OEDEMA PERIPHERAL [None]
